FAERS Safety Report 7992609-3 (Version None)
Quarter: 2011Q4

REPORT INFORMATION
  Report Type: 
  Country: None (occurrence: None)
  Receive Date: 20111219
  Receipt Date: 20111214
  Transmission Date: 20120403
  Serious: Yes (Other)
  Sender: FDA-Public Use
  Company Number: US-PFIZER INC-2011279033

PATIENT
  Sex: Male
  Weight: 77.098 kg

DRUGS (5)
  1. VIAGRA [Suspect]
     Indication: LIBIDO DECREASED
     Dosage: 100 MG, EVERY TWO WEEKS
     Route: 048
     Dates: end: 20111101
  2. GEMFIBROZIL [Concomitant]
     Indication: BLOOD TRIGLYCERIDES INCREASED
     Dosage: 600 MG, 2X/DAY
  3. AMLODIPINE BESILATE [Concomitant]
     Indication: HYPERTENSION
     Dosage: 5 MG, 2X/DAY
  4. MYCOPHENOLATE MOFETIL [Concomitant]
     Indication: MYASTHENIA GRAVIS
     Dosage: 250 MG, 3X/DAY
  5. LOSARTAN [Concomitant]
     Indication: HYPERTENSION
     Dosage: 100 MG, 1X/DAY

REACTIONS (2)
  - DIARRHOEA [None]
  - VOMITING [None]
